FAERS Safety Report 15599728 (Version 1)
Quarter: 2018Q4

REPORT INFORMATION
  Report Type: Report from Study
  Country: US (occurrence: US)
  Receive Date: 20181108
  Receipt Date: 20181108
  Transmission Date: 20190205
  Serious: Yes (Other)
  Sender: FDA-Public Use
  Company Number: US-ACTELION-A-US2018-181347

PATIENT
  Age: 61 Year
  Sex: Female

DRUGS (10)
  1. PEG 3350 [Concomitant]
     Active Substance: POLYETHYLENE GLYCOL 3350
  2. FUROSEMIDE. [Concomitant]
     Active Substance: FUROSEMIDE
  3. SPIRONOLACTONE. [Concomitant]
     Active Substance: SPIRONOLACTONE
  4. SIMVASTATIN. [Concomitant]
     Active Substance: SIMVASTATIN
  5. OPSUMIT [Suspect]
     Active Substance: MACITENTAN
     Indication: PULMONARY ARTERIAL HYPERTENSION
     Dosage: 10 MG, QD
     Route: 048
     Dates: start: 201706
  6. ASPIRIN. [Concomitant]
     Active Substance: ASPIRIN
  7. DIGOXIN. [Concomitant]
     Active Substance: DIGOXIN
  8. SILDENAFIL. [Concomitant]
     Active Substance: SILDENAFIL
  9. BISACODYL. [Concomitant]
     Active Substance: BISACODYL
  10. POTASSIUM CHLORIDE. [Concomitant]
     Active Substance: POTASSIUM CHLORIDE

REACTIONS (2)
  - Puncture site haemorrhage [Recovered/Resolved]
  - Groin pain [Unknown]

NARRATIVE: CASE EVENT DATE: 201810
